FAERS Safety Report 21666246 (Version 1)
Quarter: 2022Q4

REPORT INFORMATION
  Report Type: Report from Study
  Country: US (occurrence: US)
  Receive Date: 20221201
  Receipt Date: 20221201
  Transmission Date: 20230112
  Serious: No
  Sender: FDA-Public Use
  Company Number: US-ABBVIE-4161912

PATIENT
  Sex: Female

DRUGS (4)
  1. HUMIRA [Suspect]
     Active Substance: ADALIMUMAB
     Indication: Psoriasis
     Dosage: FORM STRENGTH: 40 MLLIGRAM
     Route: 058
  2. Moderna [Concomitant]
     Indication: COVID-19 immunisation
     Dosage: ONE IN ONCE,?FIRST DOSE
     Route: 030
     Dates: start: 20210416, end: 20210416
  3. Moderna [Concomitant]
     Indication: COVID-19 immunisation
     Dosage: ONE IN ONCE,?SECOND DOSE
     Route: 030
     Dates: start: 20210514, end: 20210514
  4. Pfizer/BioNTech [Concomitant]
     Indication: COVID-19 immunisation
     Dosage: ONE IN ONCE,?THIRD DOSE
     Route: 030
     Dates: start: 20211218, end: 20211218

REACTIONS (1)
  - Nasopharyngitis [Recovering/Resolving]
